FAERS Safety Report 24202033 (Version 2)
Quarter: 2024Q3

REPORT INFORMATION
  Report Type: Spontaneous
  Country: US (occurrence: US)
  Receive Date: 20240812
  Receipt Date: 20240903
  Transmission Date: 20241016
  Serious: Yes (Death, Other)
  Sender: BRISTOL MYERS SQUIBB
  Company Number: US-BRISTOL-MYERS SQUIBB COMPANY-2024-125648

PATIENT
  Age: 78 Year
  Sex: Female

DRUGS (3)
  1. BREYANZI [Suspect]
     Active Substance: LISOCABTAGENE MARALEUCEL
     Indication: Diffuse large B-cell lymphoma
     Dosage: NUMBER OF CD8+ CELLS INFUSED: 50X10^6 ?NUMBER OF CD4+ CELLS INFUSED: 50X10^6
     Route: 042
     Dates: start: 20240403
  2. CYCLOPHOSPHAMIDE [Concomitant]
     Active Substance: CYCLOPHOSPHAMIDE
     Indication: Diffuse large B-cell lymphoma
     Dates: start: 20240327, end: 20240329
  3. FLUDARABINE [Concomitant]
     Active Substance: FLUDARABINE PHOSPHATE
     Indication: Diffuse large B-cell lymphoma
     Dates: start: 20240327, end: 20240329

REACTIONS (2)
  - Peripheral T-cell lymphoma unspecified [Fatal]
  - Diverticulitis [Unknown]

NARRATIVE: CASE EVENT DATE: 20240621
